FAERS Safety Report 8450531-2 (Version None)
Quarter: 2012Q2

REPORT INFORMATION
  Report Type: 
  Country: None (occurrence: None)
  Receive Date: 20120613
  Receipt Date: 20120530
  Transmission Date: 20120825
  Serious: Yes (Other)
  Sender: FDA-Public Use
  Company Number: 2012FR0192

PATIENT
  Sex: Female

DRUGS (1)
  1. KINERET [Suspect]

REACTIONS (1)
  - HEPATOMEGALY [None]
